FAERS Safety Report 4315176-4 (Version None)
Quarter: 2004Q1

REPORT INFORMATION
  Report Type: 
  Country: None (occurrence: None)
  Receive Date: 20040310
  Receipt Date: 20040224
  Transmission Date: 20041129
  Serious: Yes (Other)
  Sender: FDA-Public Use
  Company Number: US-JNJFOC-20031200384

PATIENT
  Age: 41 Year
  Sex: Male
  Weight: 91.173 kg

DRUGS (12)
  1. REMICADE [Suspect]
     Indication: RHEUMATOID ARTHRITIS
     Dosage: 300 MG, INTRAVENOUS
     Route: 042
     Dates: start: 20030529
  2. REMICADE [Suspect]
     Indication: RHEUMATOID ARTHRITIS
     Dosage: 300 MG, INTRAVENOUS
     Route: 042
     Dates: start: 20030612
  3. REMICADE [Suspect]
     Indication: RHEUMATOID ARTHRITIS
     Dosage: 300 MG, INTRAVENOUS
     Route: 042
     Dates: start: 20030710
  4. REMICADE [Suspect]
     Indication: RHEUMATOID ARTHRITIS
     Dosage: 300 MG, INTRAVENOUS
     Route: 042
     Dates: start: 20031009
  5. MTX (METHOTREXATE SODIUIM) [Concomitant]
  6. ISONIAZID [Concomitant]
  7. PREDNISONE [Concomitant]
  8. CELEBREX [Concomitant]
  9. NITROGLYCERIN [Concomitant]
  10. ZANTAC [Concomitant]
  11. ZYRTEC [Concomitant]
  12. PROCARDIA XL [Concomitant]

REACTIONS (5)
  - CEREBROSPINAL FLUID LEAKAGE [None]
  - RETINAL DISORDER [None]
  - RETINOPATHY [None]
  - SCOTOMA [None]
  - STRESS SYMPTOMS [None]
